FAERS Safety Report 8964499 (Version 1)
Quarter: 2012Q4

REPORT INFORMATION
  Report Type: 
  Country: US (occurrence: US)
  Receive Date: 20121214
  Receipt Date: 20121214
  Transmission Date: 20130627
  Serious: Yes (Hospitalization)
  Sender: FDA-Public Use
  Company Number: US-ELI_LILLY_AND_COMPANY-US201212001758

PATIENT
  Sex: Female

DRUGS (2)
  1. CYMBALTA [Suspect]
     Dosage: 60 mg, UNK
  2. CYMBALTA [Suspect]
     Dosage: 30 mg, UNK

REACTIONS (11)
  - Convulsion [Unknown]
  - Pain [Not Recovered/Not Resolved]
  - Drug withdrawal syndrome [Not Recovered/Not Resolved]
  - Paraesthesia [Unknown]
  - Malaise [Unknown]
  - Mental impairment [Unknown]
  - Blindness [Unknown]
  - Mobility decreased [Unknown]
  - Pain in extremity [Unknown]
  - Movement disorder [Unknown]
  - Off label use [Unknown]
